FAERS Safety Report 8904854 (Version 2)
Quarter: 2012Q4

REPORT INFORMATION
  Report Type: 
  Country: US (occurrence: US)
  Receive Date: 20121109
  Receipt Date: 20121211
  Transmission Date: 20130627
  Serious: No
  Sender: FDA-Public Use
  Company Number: US-ASTRAZENECA-2012SE83364

PATIENT
  Age: 75 Year
  Sex: Male
  Weight: 79.4 kg

DRUGS (5)
  1. PRILOSEC [Suspect]
     Route: 048
  2. SEROQUEL [Suspect]
     Route: 048
     Dates: start: 20121015
  3. ALLOPURINOL [Concomitant]
  4. METFORMIN [Concomitant]
  5. COLACE [Concomitant]
     Indication: LAXATIVE SUPPORTIVE CARE

REACTIONS (4)
  - Gingival bleeding [Not Recovered/Not Resolved]
  - Gingivitis [Unknown]
  - Withdrawal syndrome [Unknown]
  - Insomnia [Unknown]
